FAERS Safety Report 25152001 (Version 1)
Quarter: 2025Q2

REPORT INFORMATION
  Report Type: Spontaneous
  Country: HU (occurrence: HU)
  Receive Date: 20250402
  Receipt Date: 20250402
  Transmission Date: 20250717
  Serious: Yes (Death, Hospitalization, Other)
  Sender: ASTELLAS
  Company Number: HU-ASTELLAS-2025-AER-018154

PATIENT
  Age: 73 Year
  Sex: Male

DRUGS (4)
  1. GILTERITINIB [Suspect]
     Active Substance: GILTERITINIB
     Indication: Acute myeloid leukaemia
     Route: 065
     Dates: start: 202207
  2. AZACITIDINE [Concomitant]
     Active Substance: AZACITIDINE
     Indication: Product used for unknown indication
     Route: 065
     Dates: start: 202110
  3. VENETOCLAX [Concomitant]
     Active Substance: VENETOCLAX
     Indication: Product used for unknown indication
     Route: 065
     Dates: start: 202110
  4. VENETOCLAX [Concomitant]
     Active Substance: VENETOCLAX
     Route: 065

REACTIONS (13)
  - Death [Fatal]
  - Erysipelas [Unknown]
  - Thrombocytopenia [Recovered/Resolved]
  - Pharyngeal haematoma [Recovered/Resolved]
  - Pyrexia [Recovered/Resolved]
  - Enterococcal infection [Unknown]
  - Leukaemia [Unknown]
  - Thrombocytopenia [Unknown]
  - Enterococcal sepsis [Unknown]
  - Anaemia [Unknown]
  - COVID-19 [Recovered/Resolved]
  - Product use issue [Unknown]
  - Off label use [Unknown]

NARRATIVE: CASE EVENT DATE: 20220901
